FAERS Safety Report 12528446 (Version 4)
Quarter: 2016Q3

REPORT INFORMATION
  Report Type: Spontaneous
  Country: US (occurrence: US)
  Receive Date: 20160705
  Receipt Date: 20160802
  Transmission Date: 20161109
  Serious: Yes (Hospitalization, Other)
  Sender: FDA-Public Use
  Company Number: US-DSJP-DSU-2016-122141

PATIENT

DRUGS (1)
  1. SAVAYSA [Suspect]
     Active Substance: EDOXABAN TOSYLATE
     Indication: ATRIAL FIBRILLATION
     Dosage: UNK, QD
     Dates: start: 20160517, end: 20160617

REACTIONS (2)
  - Ischaemic stroke [Unknown]
  - Haematuria [Unknown]

NARRATIVE: CASE EVENT DATE: 2016
